FAERS Safety Report 18267071 (Version 1)
Quarter: 2020Q3

REPORT INFORMATION
  Report Type: Spontaneous
  Country: US (occurrence: US)
  Receive Date: 20200914
  Receipt Date: 20200914
  Transmission Date: 20201103
  Serious: No
  Sender: FDA-Public Use
  Company Number: None

PATIENT
  Age: 74 Year
  Sex: Female
  Weight: 131.08 kg

DRUGS (11)
  1. CAPECITABINE. [Suspect]
     Active Substance: CAPECITABINE
     Indication: RECTAL CANCER
     Dosage: ?          OTHER FREQUENCY:BID MONDAY?FRIDAY;?
     Route: 048
     Dates: start: 20200807
  2. REQUIP 2MG [Concomitant]
  3. OXYCODONE 10MG [Concomitant]
     Active Substance: OXYCODONE
  4. VITAMIN D 25MCG [Concomitant]
  5. ALLOPURINOL 100MG [Concomitant]
     Active Substance: ALLOPURINOL
  6. ALPRAZOLAM 0.25MG [Concomitant]
     Active Substance: ALPRAZOLAM
  7. SINGULAR 10MG [Concomitant]
  8. CYMBALTA [Concomitant]
     Active Substance: DULOXETINE HYDROCHLORIDE
  9. ATENOLOL 100MG [Concomitant]
     Active Substance: ATENOLOL
  10. PRIMIDONE 50MG [Concomitant]
     Active Substance: PRIMIDONE
  11. SIMVASTATIN 80MG [Concomitant]
     Active Substance: SIMVASTATIN

REACTIONS (1)
  - Adverse drug reaction [None]

NARRATIVE: CASE EVENT DATE: 20200914
